FAERS Safety Report 4689742-0 (Version None)
Quarter: 2005Q2

REPORT INFORMATION
  Report Type: 
  Country: None (occurrence: None)
  Receive Date: 20050613
  Receipt Date: 20050613
  Transmission Date: 20051028
  Serious: Yes (Hospitalization)
  Sender: FDA-Public Use
  Company Number: None

PATIENT
  Age: 47 Year
  Sex: Female
  Weight: 90.7194 kg

DRUGS (3)
  1. FENTANYL [Suspect]
     Indication: BONE DISORDER
     Dosage: PATCHES EVERY 72 HRS TRANSDERMA
     Route: 062
  2. FENTANYL [Suspect]
     Indication: FIBROMYALGIA
     Dosage: PATCHES EVERY 72 HRS TRANSDERMA
     Route: 062
  3. LORTAB [Suspect]
     Dosage: 1-2 EVERY 6HRS   ORAL
     Route: 048

REACTIONS (9)
  - ABDOMINAL PAIN [None]
  - DISTURBANCE IN ATTENTION [None]
  - HEADACHE [None]
  - INSOMNIA [None]
  - MEDICATION ERROR [None]
  - PAIN [None]
  - RASH [None]
  - THERAPEUTIC RESPONSE UNEXPECTED WITH DRUG SUBSTITUTION [None]
  - VOMITING [None]
